FAERS Safety Report 4507559-4 (Version None)
Quarter: 2004Q4

REPORT INFORMATION
  Report Type: 
  Country: None (occurrence: None)
  Receive Date: 20041118
  Receipt Date: 20041010
  Transmission Date: 20050328
  Serious: Yes (Hospitalization)
  Sender: FDA-Public Use
  Company Number: TCI2004A03756

PATIENT
  Age: 53 Year
  Sex: Male

DRUGS (15)
  1. PIOGLITAZONE HCL [Suspect]
     Indication: DIABETES MELLITUS NON-INSULIN-DEPENDENT
     Dosage: 15 MG (15 MG, 1 IN 1 D), PER ORAL
     Route: 048
     Dates: start: 20040805, end: 20040930
  2. BASEN TABLETS 0.2 (VOGLIBOSE) [Suspect]
     Indication: DIABETES MELLITUS NON-INSULIN-DEPENDENT
     Dosage: SEE IMAGE, PER ORAL
     Route: 048
     Dates: start: 20040511, end: 20040804
  3. BASEN TABLETS 0.2 (VOGLIBOSE) [Suspect]
     Indication: DIABETES MELLITUS NON-INSULIN-DEPENDENT
     Dosage: SEE IMAGE, PER ORAL
     Route: 048
     Dates: start: 20041001, end: 20041014
  4. BASEN TABLETS 0.2 (VOGLIBOSE) [Suspect]
     Indication: DIABETES MELLITUS NON-INSULIN-DEPENDENT
     Dosage: SEE IMAGE, PER ORAL
     Route: 048
     Dates: start: 20041024
  5. VOGLIBOSE (CODE NOT BROKEN) (VOGLIBOSE) [Suspect]
     Dosage: 0.6 MG OR PLACEBO (3 IN 1 D) , PER ORAL
     Route: 048
     Dates: start: 20040805, end: 20041001
  6. ACTOS [Concomitant]
  7. FAMOTIDINE [Concomitant]
  8. VALSARTAN [Concomitant]
  9. SULPIRIDE [Concomitant]
  10. EPADEL S (ETHYL ICOSAPENTATE) [Concomitant]
  11. BEZAFIBRATE [Concomitant]
  12. SILDENAFIL CITRATE [Concomitant]
  13. ISEPAMICIN SULFATE [Concomitant]
  14. KETOPROFEN [Concomitant]
  15. OFLOXACIN [Concomitant]

REACTIONS (2)
  - BLADDER CANCER [None]
  - TRANSITIONAL CELL CARCINOMA [None]
